FAERS Safety Report 11347723 (Version 1)
Quarter: 2015Q3

REPORT INFORMATION
  Report Type: Spontaneous
  Country: US (occurrence: US)
  Receive Date: 20150806
  Receipt Date: 20150806
  Transmission Date: 20151125
  Serious: Yes (Other)
  Sender: FDA-Public Use
  Company Number: US-ABBVIE-15P-163-1339554-00

PATIENT
  Age: 5 Year
  Sex: Female

DRUGS (1)
  1. DEPAKOTE [Suspect]
     Active Substance: DIVALPROEX SODIUM
     Indication: COMPLEX PARTIAL SEIZURES
     Route: 065

REACTIONS (3)
  - Drug ineffective [Unknown]
  - Complex partial seizures [Unknown]
  - Psychomotor hyperactivity [Unknown]
